FAERS Safety Report 10909978 (Version 1)
Quarter: 2015Q1

REPORT INFORMATION
  Report Type: Spontaneous
  Country: US (occurrence: US)
  Receive Date: 20150312
  Receipt Date: 20150312
  Transmission Date: 20150721
  Serious: No
  Sender: FDA-Public Use
  Company Number: US-SA-2014SA087035

PATIENT
  Age: 80 Year
  Sex: Female
  Weight: 72.57 kg

DRUGS (1)
  1. NASACORT ALLERGY 24HR [Suspect]
     Active Substance: TRIAMCINOLONE ACETONIDE
     Indication: NASOPHARYNGITIS
     Dosage: DOSAGE: 2 SPRAYS/DAY?PRODUCT START DATE: 5 WEEK AGO, STOP DATE AFTER 5 DAYS.

REACTIONS (2)
  - Anosmia [Unknown]
  - Ageusia [Unknown]
